FAERS Safety Report 9753066 (Version 1)
Quarter: 2013Q4

REPORT INFORMATION
  Report Type: Spontaneous
  Country: JP (occurrence: JP)
  Receive Date: 20131213
  Receipt Date: 20131213
  Transmission Date: 20140711
  Serious: Yes (Other)
  Sender: FDA-Public Use
  Company Number: JP-PFIZER INC-2013352653

PATIENT
  Age: 80 Year
  Sex: Male

DRUGS (1)
  1. AZULFIDINE EN [Suspect]
     Dosage: 500 UNK, UNK
     Route: 048
     Dates: start: 201207, end: 201208

REACTIONS (2)
  - Stevens-Johnson syndrome [Unknown]
  - Oculomucocutaneous syndrome [Unknown]
